FAERS Safety Report 22954179 (Version 2)
Quarter: 2024Q4

REPORT INFORMATION
  Report Type: Report from Study
  Country: FR (occurrence: FR)
  Receive Date: 20230918
  Receipt Date: 20241217
  Transmission Date: 20250115
  Serious: Yes (Other)
  Sender: MYLAN
  Company Number: FR-BRISTOL-MYERS SQUIBB COMPANY-2023-118683

PATIENT
  Age: 60 Year
  Sex: Male
  Weight: 70 kg

DRUGS (5)
  1. PACLITAXEL [Suspect]
     Active Substance: PACLITAXEL
     Indication: Neoplasm malignant
     Dosage: UNK
     Route: 042
     Dates: start: 20230126
  2. PACLITAXEL [Suspect]
     Active Substance: PACLITAXEL
     Dosage: REDUCED DOSE (UNSPECIFIED)
     Route: 042
  3. APIXABAN [Suspect]
     Active Substance: APIXABAN
     Indication: Embolism venous
     Dosage: RECEIVED 5 MG TWICE A DAY OR 2.5 MG TWICE A DAY
     Route: 048
     Dates: start: 20230322, end: 20230602
  4. CARBOPLATIN [Suspect]
     Active Substance: CARBOPLATIN
     Indication: Neoplasm malignant
     Dosage: UNK
     Route: 042
     Dates: start: 20230126
  5. CARBOPLATIN [Suspect]
     Active Substance: CARBOPLATIN
     Dosage: REDUCED DOSE (UNSPECIFIED)
     Route: 042

REACTIONS (1)
  - Hepatic cytolysis [Not Recovered/Not Resolved]

NARRATIVE: CASE EVENT DATE: 20230524
